FAERS Safety Report 4838163-6 (Version None)
Quarter: 2005Q4

REPORT INFORMATION
  Report Type: 
  Country: None (occurrence: None)
  Receive Date: 20051123
  Receipt Date: 20051123
  Transmission Date: 20060501
  Serious: Yes (Hospitalization)
  Sender: FDA-Public Use
  Company Number: None

PATIENT
  Sex: Female

DRUGS (8)
  1. WARFARIN [Suspect]
     Indication: HEART VALVE REPLACEMENT
     Dosage: 7.5 MG PO QHS
     Route: 048
  2. ENOXAPARIN [Suspect]
     Indication: HEART VALVE REPLACEMENT
     Dosage: 150MG SQ BID
     Route: 058
  3. ALBUTEROL [Concomitant]
  4. LISINOPRIL [Concomitant]
  5. LOVASTATIN [Concomitant]
  6. SEROQUEL [Concomitant]
  7. KLONOPIN [Concomitant]
  8. ABILIFY [Concomitant]

REACTIONS (1)
  - UNEVALUABLE EVENT [None]
